FAERS Safety Report 26169482 (Version 1)
Quarter: 2025Q4

REPORT INFORMATION
  Report Type: Spontaneous
  Country: US (occurrence: US)
  Receive Date: 20251217
  Receipt Date: 20251217
  Transmission Date: 20260117
  Serious: Yes (Life-Threatening, Other)
  Sender: DR REDDYS
  Company Number: US-DRL-USA-USA/2025/12/018977

PATIENT
  Age: 76 Year
  Sex: Male

DRUGS (3)
  1. IMATINIB [Suspect]
     Active Substance: IMATINIB
     Indication: Gastrointestinal stromal tumour
     Dates: start: 202405
  2. LISINOPRIL [Concomitant]
     Active Substance: LISINOPRIL
     Indication: Gastrointestinal stromal tumour
  3. FARXIGA [Concomitant]
     Active Substance: DAPAGLIFLOZIN PROPANEDIOL
     Indication: Gastrointestinal stromal tumour

REACTIONS (2)
  - Rhabdomyolysis [Recovering/Resolving]
  - Acute kidney injury [Recovering/Resolving]
